FAERS Safety Report 6920176-1 (Version None)
Quarter: 2010Q3

REPORT INFORMATION
  Report Type: 
  Country: None (occurrence: None)
  Receive Date: 20100811
  Receipt Date: 20100809
  Transmission Date: 20110219
  Serious: Yes (Death, Other)
  Sender: FDA-Public Use
  Company Number: US-CELGENEUS-163-20785-10071149

PATIENT
  Sex: Female

DRUGS (13)
  1. THALOMID [Suspect]
     Indication: MULTIPLE MYELOMA
     Dosage: 400MG DAILY X 4 DOSES THEN 100MG DAILY
     Route: 048
     Dates: start: 20100618, end: 20100627
  2. ACYCLOVIR [Concomitant]
     Indication: HERPES SIMPLEX
     Route: 048
     Dates: start: 20100611
  3. ARIPIPRAZOLE [Concomitant]
     Indication: BIPOLAR DISORDER
     Route: 048
  4. BACLOFEN [Concomitant]
     Route: 048
     Dates: start: 20100616
  5. BUPROPION HCL [Concomitant]
     Indication: BIPOLAR DISORDER
     Route: 065
  6. CALCIUM WITH VITAMIN D [Concomitant]
     Indication: PRODUCT USED FOR UNKNOWN INDICATION
     Route: 065
     Dates: start: 20100616
  7. DEXAMETHASONE [Concomitant]
     Indication: SPINAL CORD COMPRESSION
     Route: 048
     Dates: start: 20100607
  8. NEUPOGEN [Concomitant]
     Route: 058
     Dates: start: 20100623
  9. FLUCONAZOLE [Concomitant]
     Route: 048
     Dates: start: 20100625
  10. MORPHINE SULFATE [Concomitant]
     Indication: PAIN
     Route: 048
  11. MORPHINE SULFATE [Concomitant]
     Indication: PAIN
     Dosage: 15-30MG
     Route: 048
  12. BACTRIM DS [Concomitant]
     Indication: PNEUMONIA
     Route: 065
     Dates: start: 20100614
  13. VENLAFAXINA [Concomitant]
     Indication: BIPOLAR DISORDER
     Route: 048

REACTIONS (2)
  - HUMERUS FRACTURE [None]
  - PULMONARY HAEMORRHAGE [None]
